FAERS Safety Report 7987688-3 (Version None)
Quarter: 2011Q4

REPORT INFORMATION
  Report Type: 
  Country: None (occurrence: None)
  Receive Date: 20111216
  Receipt Date: 20110425
  Transmission Date: 20120403
  Serious: No
  Sender: FDA-Public Use
  Company Number: US-BRISTOL-MYERS SQUIBB COMPANY-15694607

PATIENT
  Sex: Male

DRUGS (3)
  1. COGENTIN [Concomitant]
  2. ABILIFY [Suspect]
     Indication: BIPOLAR DISORDER
     Dosage: DOSE REDUCED TO 5MG
  3. ABILIFY [Suspect]
     Indication: MAJOR DEPRESSION
     Dosage: DOSE REDUCED TO 5MG

REACTIONS (1)
  - MUSCLE TWITCHING [None]
